FAERS Safety Report 8502477-9 (Version None)
Quarter: 2012Q3

REPORT INFORMATION
  Report Type: 
  Country: None (occurrence: None)
  Receive Date: 20120711
  Receipt Date: 20120629
  Transmission Date: 20120928
  Serious: Yes (Hospitalization)
  Sender: FDA-Public Use
  Company Number: US-JNJFOC-20120306681

PATIENT
  Age: 26 Year
  Sex: Male
  Weight: 65.7 kg

DRUGS (5)
  1. ACETAMINOPHEN [Suspect]
     Indication: PRODUCT USED FOR UNKNOWN INDICATION
     Route: 048
  2. CITALOPRAM HYDROBROMIDE [Suspect]
     Indication: PRODUCT USED FOR UNKNOWN INDICATION
     Route: 065
  3. BENZTROPINE MESYLATE [Suspect]
     Indication: PRODUCT USED FOR UNKNOWN INDICATION
     Route: 065
  4. RISPERIDONE [Suspect]
     Indication: PRODUCT USED FOR UNKNOWN INDICATION
     Route: 065
  5. ACETAMINOPHEN [Suspect]
     Route: 048

REACTIONS (7)
  - SKIN INJURY [None]
  - RENAL FAILURE ACUTE [None]
  - MULTIPLE DRUG OVERDOSE [None]
  - DEHYDRATION [None]
  - RHABDOMYOLYSIS [None]
  - LOSS OF CONSCIOUSNESS [None]
  - ANTICHOLINERGIC SYNDROME [None]
